FAERS Safety Report 13804371 (Version 1)
Quarter: 2017Q3

REPORT INFORMATION
  Report Type: Spontaneous
  Country: IT (occurrence: IT)
  Receive Date: 20170728
  Receipt Date: 20170728
  Transmission Date: 20171127
  Serious: Yes (Other)
  Sender: FDA-Public Use
  Company Number: IT-ROCHE-1968301

PATIENT
  Age: 28 Year
  Sex: Male

DRUGS (2)
  1. CELLCEPT [Suspect]
     Active Substance: MYCOPHENOLATE MOFETIL\MYCOPHENOLATE MOFETIL HYDROCHLORIDE
     Indication: SYSTEMIC SCLERODERMA
     Dosage: 50 TABLETS 500 MG
     Route: 048
     Dates: start: 20131217
  2. TRACLEER [Concomitant]
     Active Substance: BOSENTAN
     Dosage: 56 COATED TABLETS PERIOD: 4 YEARS
     Route: 065
     Dates: start: 20131217

REACTIONS (2)
  - Apnoea [Recovering/Resolving]
  - Cough [Recovering/Resolving]

NARRATIVE: CASE EVENT DATE: 20131217
